FAERS Safety Report 24267704 (Version 1)
Quarter: 2024Q3

REPORT INFORMATION
  Report Type: Spontaneous
  Country: US (occurrence: US)
  Receive Date: 20240830
  Receipt Date: 20240830
  Transmission Date: 20241017
  Serious: Yes (Other)
  Sender: AMERICAN REGENT
  Company Number: US-AMERICAN REGENT INC-2024003318

PATIENT
  Age: 60 Year
  Sex: Male

DRUGS (5)
  1. HYDROXYZINE HYDROCHLORIDE [Suspect]
     Active Substance: HYDROXYZINE HYDROCHLORIDE
     Indication: Sedative therapy
     Dosage: UNK
     Route: 065
  2. ERYTHROMYCIN [Suspect]
     Active Substance: ERYTHROMYCIN
     Indication: Antibiotic therapy
     Dosage: FOR BILATERAL EYES
     Route: 047
  3. KETAMINE [Suspect]
     Active Substance: KETAMINE
     Indication: Sedative therapy
     Dosage: UNK
     Route: 065
  4. SPIRONOLACTONE [Suspect]
     Active Substance: SPIRONOLACTONE
     Indication: Urine output decreased
     Dosage: UNK
     Route: 065
  5. CALCIUM CHLORIDE\POTASSIUM CHLORIDE\SODIUM LACTATE [Concomitant]
     Active Substance: CALCIUM CHLORIDE\POTASSIUM CHLORIDE\SODIUM LACTATE
     Indication: Fluid replacement
     Dosage: 1.83 LITER
     Route: 065

REACTIONS (2)
  - Porphyria acute [Not Recovered/Not Resolved]
  - Product use in unapproved indication [Unknown]
